FAERS Safety Report 6572733-2 (Version None)
Quarter: 2010Q1

REPORT INFORMATION
  Report Type: 
  Country: None (occurrence: None)
  Receive Date: 20100205
  Receipt Date: 20100125
  Transmission Date: 20100710
  Serious: Yes (Hospitalization, Other)
  Sender: FDA-Public Use
  Company Number: US-JNJFOC-20090707569

PATIENT
  Sex: Female
  Weight: 72.58 kg

DRUGS (34)
  1. DURAGESIC-100 [Suspect]
     Indication: PAIN
     Route: 062
  2. DURAGESIC-100 [Suspect]
     Route: 062
  3. DURAGESIC-100 [Suspect]
     Route: 062
  4. DURAGESIC-100 [Suspect]
     Route: 062
  5. DURAGESIC-100 [Suspect]
     Route: 062
  6. DURAGESIC-100 [Suspect]
     Route: 062
  7. DURAGESIC-100 [Suspect]
     Route: 062
  8. DURAGESIC-100 [Suspect]
     Route: 062
  9. DURAGESIC-100 [Suspect]
     Route: 062
  10. DURAGESIC-100 [Suspect]
     Route: 062
  11. DURAGESIC-100 [Suspect]
     Indication: PAIN IN EXTREMITY
     Route: 062
  12. DURAGESIC-100 [Suspect]
     Route: 062
  13. DURAGESIC-100 [Suspect]
     Route: 062
  14. DURAGESIC-100 [Suspect]
     Route: 062
  15. DURAGESIC-100 [Suspect]
     Route: 062
  16. DURAGESIC-100 [Suspect]
     Indication: NEURALGIA
     Route: 062
  17. DURAGESIC-100 [Suspect]
     Route: 062
  18. DURAGESIC-100 [Suspect]
     Route: 062
  19. DURAGESIC-100 [Suspect]
     Route: 062
  20. DURAGESIC-100 [Suspect]
     Route: 062
  21. NEURONTIN [Concomitant]
     Indication: NEURALGIA
     Route: 048
  22. PERCOCET [Concomitant]
     Indication: PAIN
     Dosage: 10-325MG
     Route: 048
  23. PHENERGAN HCL [Concomitant]
     Indication: OESOPHAGEAL ULCER
     Route: 048
  24. SOMA [Concomitant]
     Indication: MUSCLE SPASMS
     Route: 048
  25. ZANTAC [Concomitant]
     Indication: GASTROOESOPHAGEAL REFLUX DISEASE
     Route: 048
  26. CRESTOR [Concomitant]
     Indication: BLOOD CHOLESTEROL
     Route: 048
  27. DIPHENHYDRAMINE [Concomitant]
     Indication: SLEEP DISORDER
     Route: 048
  28. FIBER SUPPLEMENT [Concomitant]
     Indication: MEDICAL DIET
     Route: 048
  29. PERCOCET [Concomitant]
     Indication: BREAKTHROUGH PAIN
     Dosage: DOSE: 5/325 MG A DAY
     Route: 048
  30. XANAX [Concomitant]
     Indication: ANXIETY
     Route: 048
  31. ADVAIR DISKUS 100/50 [Concomitant]
     Indication: CHRONIC OBSTRUCTIVE PULMONARY DISEASE
     Route: 055
  32. DUONEB [Concomitant]
     Indication: BRONCHITIS
     Route: 055
  33. RITALIN [Concomitant]
     Indication: FATIGUE
     Route: 048
  34. MILK OF MAGNESIA TAB [Concomitant]
     Indication: GASTROOESOPHAGEAL REFLUX DISEASE
     Route: 048

REACTIONS (23)
  - ABDOMINAL PAIN [None]
  - ABNORMAL LOSS OF WEIGHT [None]
  - ANXIETY [None]
  - AORTIC CALCIFICATION [None]
  - APPENDICITIS PERFORATED [None]
  - APPLICATION SITE PRURITUS [None]
  - APPLICATION SITE RASH [None]
  - APPLICATION SITE REACTION [None]
  - APPLICATION SITE ULCER [None]
  - BLADDER DISORDER [None]
  - BLADDER PROLAPSE [None]
  - CHEST PAIN [None]
  - COLITIS [None]
  - DEPRESSION [None]
  - DEVICE BREAKAGE [None]
  - DRUG EFFECT DECREASED [None]
  - DRUG PRESCRIBING ERROR [None]
  - HYPERHIDROSIS [None]
  - INSOMNIA [None]
  - INTESTINAL PROLAPSE [None]
  - PAIN IN EXTREMITY [None]
  - VITAMIN D DEFICIENCY [None]
  - WITHDRAWAL SYNDROME [None]
